FAERS Safety Report 10878542 (Version 1)
Quarter: 2015Q1

REPORT INFORMATION
  Report Type: Spontaneous
  Country: US (occurrence: US)
  Receive Date: 20150302
  Receipt Date: 20150302
  Transmission Date: 20150721
  Serious: No
  Sender: FDA-Public Use
  Company Number: US-ABBVIE-14P-163-1295441-00

PATIENT
  Age: 57 Year
  Sex: Male
  Weight: 74.91 kg

DRUGS (5)
  1. MULTIVITAMINS [Concomitant]
     Active Substance: VITAMINS
     Indication: PRODUCT USED FOR UNKNOWN INDICATION
  2. ANDROGEL [Suspect]
     Active Substance: TESTOSTERONE
     Dosage: (THREE) 5 GRM PACKET DAILY
     Route: 061
     Dates: start: 201408, end: 201409
  3. ANDROGEL [Suspect]
     Active Substance: TESTOSTERONE
     Indication: PRODUCT USED FOR UNKNOWN INDICATION
     Dosage: (TWO) 5 GRAM PACKETS DAILY
     Route: 061
     Dates: start: 201407, end: 201408
  4. ANDROGEL [Suspect]
     Active Substance: TESTOSTERONE
     Dosage: (FOUR) 5 GRAM PACKET DAILY
     Route: 061
     Dates: start: 201409
  5. FLAXSEED [Concomitant]
     Active Substance: FLAX SEED
     Indication: PRODUCT USED FOR UNKNOWN INDICATION

REACTIONS (4)
  - Exercise tolerance decreased [Recovering/Resolving]
  - Intentional overdose [Not Recovered/Not Resolved]
  - Asthenia [Recovering/Resolving]
  - Insomnia [Recovering/Resolving]

NARRATIVE: CASE EVENT DATE: 201407
